FAERS Safety Report 9047382 (Version 1)
Quarter: 2013Q1

REPORT INFORMATION
  Report Type: Report from Study
  Country: US (occurrence: US)
  Receive Date: 20130201
  Receipt Date: 20130201
  Transmission Date: 20140127
  Serious: No
  Sender: FDA-Public Use
  Company Number: US-ABBOTT-12P-163-1014808-00

PATIENT
  Age: 41 None
  Sex: Female
  Weight: 57.66 kg

DRUGS (7)
  1. HUMIRA [Suspect]
     Indication: PSORIATIC ARTHROPATHY
     Route: 058
     Dates: start: 20120918
  2. METHOTREXATE [Concomitant]
     Indication: PSORIATIC ARTHROPATHY
     Dosage: 4 TABS WEEKLY
     Dates: start: 201208
  3. FOLIC ACID [Concomitant]
     Indication: PSORIATIC ARTHROPATHY
     Dosage: 1 DAILY
     Dates: start: 201208
  4. MOBIC [Concomitant]
     Indication: PAIN
     Dosage: 1 DAILY
  5. CALCIUM [Concomitant]
     Indication: PRODUCT USED FOR UNKNOWN INDICATION
     Dosage: 1 DAILY
  6. VITAMIN D3 [Concomitant]
     Indication: PRODUCT USED FOR UNKNOWN INDICATION
     Dosage: 1 DAILY
  7. ZOVIRAX [Concomitant]
     Indication: GENITAL HERPES
     Dosage: AS NEEDED

REACTIONS (8)
  - Weight decreased [Not Recovered/Not Resolved]
  - Laryngitis [Recovered/Resolved]
  - Injection site urticaria [Recovered/Resolved]
  - Injection site pain [Recovered/Resolved]
  - Device malfunction [Unknown]
  - Incorrect dose administered [Unknown]
  - Injection site swelling [Unknown]
  - Injection site pruritus [Unknown]
